FAERS Safety Report 4696721-6 (Version None)
Quarter: 2005Q2

REPORT INFORMATION
  Report Type: 
  Country: None (occurrence: None)
  Receive Date: 20050620
  Receipt Date: 20050603
  Transmission Date: 20051028
  Serious: Yes (Other)
  Sender: FDA-Public Use
  Company Number: A-US2004-05999

PATIENT
  Age: 59 Year
  Sex: Female

DRUGS (7)
  1. TRACLEER [Suspect]
     Indication: PULMONARY HYPERTENSION
     Dosage: 125 MG, BID; ORAL (SEE IMAGE)
     Route: 048
     Dates: start: 20040419, end: 20040518
  2. TRACLEER [Suspect]
     Indication: PULMONARY HYPERTENSION
     Dosage: 125 MG, BID; ORAL (SEE IMAGE)
     Route: 048
     Dates: start: 20040519, end: 20050527
  3. SYNTHROID [Concomitant]
  4. FOSAMAX [Concomitant]
  5. VITAMIN B COMPLEX CAP [Concomitant]
  6. VITAMIN C (ASCORBIC ACID) [Concomitant]
  7. CALCIUM GLUCONATE [Concomitant]

REACTIONS (12)
  - ALANINE AMINOTRANSFERASE INCREASED [None]
  - ANOREXIA [None]
  - ASPARTATE AMINOTRANSFERASE INCREASED [None]
  - BLOOD ALKALINE PHOSPHATASE INCREASED [None]
  - BLOOD BILIRUBIN INCREASED [None]
  - CHROMATURIA [None]
  - DIZZINESS [None]
  - FATIGUE [None]
  - HEADACHE [None]
  - JAUNDICE [None]
  - NAUSEA [None]
  - OCULAR ICTERUS [None]
